FAERS Safety Report 24303141 (Version 1)
Quarter: 2024Q3

REPORT INFORMATION
  Report Type: Spontaneous
  Country: FR (occurrence: FR)
  Receive Date: 20240910
  Receipt Date: 20240910
  Transmission Date: 20241017
  Serious: Yes (Hospitalization)
  Sender: FRESENIUS KABI
  Company Number: None

PATIENT
  Age: 77 Year
  Sex: Male
  Weight: 92 kg

DRUGS (3)
  1. CLINDAMYCIN PHOSPHATE [Suspect]
     Active Substance: CLINDAMYCIN PHOSPHATE
     Indication: Localised infection
     Dosage: 900MG X3?ROUT OF ADMIN: INTRAVENOUS
     Dates: start: 20240717, end: 20240820
  2. GABAPENTIN [Suspect]
     Active Substance: GABAPENTIN
     Indication: Neuralgia
     Dosage: 100MG X3?DOSAGE FORM: CAPSULE?ROA: ORAL
     Dates: start: 20240806, end: 20240820
  3. GABAPENTIN [Suspect]
     Active Substance: GABAPENTIN
     Indication: Localised infection
     Dosage: 1G X3?ROA: INTRAVNEOUS
     Dates: start: 20240730, end: 20240817

REACTIONS (2)
  - Dermatitis diaper [Recovering/Resolving]
  - Rash [Recovering/Resolving]

NARRATIVE: CASE EVENT DATE: 20240812
